FAERS Safety Report 26041837 (Version 2)
Quarter: 2025Q4

REPORT INFORMATION
  Report Type: Spontaneous
  Country: US (occurrence: US)
  Receive Date: 20251113
  Receipt Date: 20251204
  Transmission Date: 20260117
  Serious: No
  Sender: SANOFI AVENTIS
  Company Number: US-SA-2025SA336464

PATIENT
  Sex: Male

DRUGS (1)
  1. DUPIXENT [Suspect]
     Active Substance: DUPILUMAB
     Indication: Urticaria
     Dosage: 300 MG, QOW
     Route: 058

REACTIONS (6)
  - Rash vesicular [Unknown]
  - Skin ulcer [Unknown]
  - Scratch [Unknown]
  - Rash macular [Unknown]
  - Pruritus [Unknown]
  - Product use in unapproved indication [Unknown]
